FAERS Safety Report 17772268 (Version 1)
Quarter: 2020Q2

REPORT INFORMATION
  Report Type: Spontaneous
  Country: US (occurrence: US)
  Receive Date: 20200512
  Receipt Date: 20200512
  Transmission Date: 20200714
  Serious: Yes (Life-Threatening, Hospitalization)
  Sender: FDA-Public Use
  Company Number: US-MYLANLABS-2020M1046821

PATIENT
  Age: 18 Year
  Sex: Female

DRUGS (11)
  1. GEMCITABINE. [Suspect]
     Active Substance: GEMCITABINE
     Indication: HODGKIN^S DISEASE
     Route: 065
  2. BLEOMYCIN [Suspect]
     Active Substance: BLEOMYCIN SULFATE
     Indication: HODGKIN^S DISEASE
     Dosage: RECEIVED 2 CYCLES IN ABVE-PC REGIMEN AND 3 CYCLES IN BEACOPP REGIMEN- TOTAL 5 CYCLES
     Route: 065
  3. PROCARBAZINE [Suspect]
     Active Substance: PROCARBAZINE
     Indication: HODGKIN^S DISEASE
     Dosage: RECEIVED 3 CYCLES
     Route: 065
  4. DOXORUBICIN [Suspect]
     Active Substance: DOXORUBICIN
     Indication: HODGKIN^S DISEASE
     Dosage: RECEIVED 2 CYCLES IN ABVE-PC REGIMEN AND 3 CYCLES IN BEACOPP REGIMEN- TOTAL 5 CYCLES
     Route: 065
  5. PREDNISONE. [Suspect]
     Active Substance: PREDNISONE
     Indication: HODGKIN^S DISEASE
     Dosage: RECEIVED 2 CYCLES IN ABVE-PC REGIMEN AND 3 CYCLES IN BEACOPP REGIMEN- TOTAL 5 CYCLES
     Route: 065
  6. BRENTUXIMAB VEDOTIN [Suspect]
     Active Substance: BRENTUXIMAB VEDOTIN
     Indication: HODGKIN^S DISEASE
     Dosage: RECEIVED 3 DOSES
     Route: 065
  7. IFOSFAMIDE. [Suspect]
     Active Substance: IFOSFAMIDE
     Indication: HODGKIN^S DISEASE
     Dosage: RECEIVED 1 CYCLE
     Route: 065
  8. VINCRISTINE [Suspect]
     Active Substance: VINCRISTINE
     Indication: HODGKIN^S DISEASE
     Dosage: RECEIVED 2 CYCLES IN ABVE-PC REGIMEN AND 3 CYCLES IN BEACOPP REGIMEN- TOTAL 5 CYCLES
     Route: 065
  9. CYCLOPHOSPHAMIDE. [Suspect]
     Active Substance: CYCLOPHOSPHAMIDE
     Indication: HODGKIN^S DISEASE
     Dosage: RECEIVED 2 CYCLES IN ABVE-PC REGIMEN AND 3 CYCLES IN BEACOPP REGIMEN- TOTAL 5 CYCLES
     Route: 065
  10. ETOPOSIDE. [Suspect]
     Active Substance: ETOPOSIDE
     Indication: HODGKIN^S DISEASE
     Dosage: RECEIVED 2 CYCLES IN ABVE-PC REGIMEN AND 3 CYCLES IN BEACOPP REGIMEN- TOTAL 5 CYCLES
     Route: 065
  11. VINORELBINE [Suspect]
     Active Substance: VINORELBINE TARTRATE
     Indication: HODGKIN^S DISEASE
     Dosage: RECEIVED 1 CYCLE
     Route: 065

REACTIONS (4)
  - Respiratory failure [Recovered/Resolved]
  - Mycobacterium avium complex infection [Recovered/Resolved]
  - Pneumothorax [Recovered/Resolved]
  - Pleural effusion [Recovered/Resolved]
